FAERS Safety Report 25617082 (Version 2)
Quarter: 2025Q3

REPORT INFORMATION
  Report Type: Report from Study
  Country: US (occurrence: US)
  Receive Date: 20250729
  Receipt Date: 20250814
  Transmission Date: 20251020
  Serious: Yes (Hospitalization, Other)
  Sender: JOHNSON AND JOHNSON
  Company Number: US-JNJFOC-20250718530

PATIENT
  Age: 52 Year
  Sex: Female
  Weight: 72.575 kg

DRUGS (6)
  1. VELETRI [Suspect]
     Active Substance: EPOPROSTENOL
     Indication: Pulmonary arterial hypertension
     Dosage: LOT EXPIRATION DATE: 31-DEC-2026
     Route: 042
  2. TREPROSTINIL [Concomitant]
     Active Substance: TREPROSTINIL
     Indication: Product used for unknown indication
  3. TADALAFIL [Concomitant]
     Active Substance: TADALAFIL
     Indication: Product used for unknown indication
  4. OPSUMIT [Concomitant]
     Active Substance: MACITENTAN
     Indication: Product used for unknown indication
  5. XARELTO [Concomitant]
     Active Substance: RIVAROXABAN
     Indication: Product used for unknown indication
  6. WINREVAIR [Concomitant]
     Active Substance: SOTATERCEPT-CSRK
     Indication: Product used for unknown indication

REACTIONS (8)
  - Device occlusion [Unknown]
  - Pulmonary arterial hypertension [Unknown]
  - Device alarm issue [Unknown]
  - Product administration interrupted [Unknown]
  - Anxiety [Unknown]
  - Rash macular [Unknown]
  - Tachycardia [Unknown]
  - Feeling hot [Unknown]

NARRATIVE: CASE EVENT DATE: 20250714
